FAERS Safety Report 13390054 (Version 3)
Quarter: 2017Q3

REPORT INFORMATION
  Report Type: Report from Study
  Country: FR (occurrence: FR)
  Receive Date: 20170331
  Receipt Date: 20170807
  Transmission Date: 20171127
  Serious: Yes (Hospitalization, Other)
  Sender: FDA-Public Use
  Company Number: FR-AMGEN-FRANI2017046327

PATIENT
  Age: 66 Year
  Sex: Female
  Weight: 75 kg

DRUGS (4)
  1. DEXAMETHASONE. [Suspect]
     Active Substance: DEXAMETHASONE
     Indication: PLASMA CELL MYELOMA
     Dosage: 40 MG, DAY 1, 8 AND 15.
     Route: 065
  2. REVLIMID [Suspect]
     Active Substance: LENALIDOMIDE
     Indication: PLASMA CELL MYELOMA
     Dosage: 25 MG, QD
     Route: 065
     Dates: start: 201701
  3. CARFILZOMIB [Suspect]
     Active Substance: CARFILZOMIB
     Indication: PLASMA CELL MYELOMA
     Dosage: 27 MG/M2, (OR 50 MG) DAY 1, 2, 8, 9, 15, AND 16
     Route: 042
     Dates: start: 201701, end: 2017
  4. CARFILZOMIB [Suspect]
     Active Substance: CARFILZOMIB
     Dosage: REDUCED DOSE, UNK
     Route: 042
     Dates: start: 2017

REACTIONS (3)
  - Asthenia [Not Recovered/Not Resolved]
  - Bronchitis [Recovered/Resolved]
  - Fatigue [Recovered/Resolved]

NARRATIVE: CASE EVENT DATE: 2017
